FAERS Safety Report 4988060-0 (Version None)
Quarter: 2006Q2

REPORT INFORMATION
  Report Type: 
  Country: None (occurrence: None)
  Receive Date: 20060425
  Receipt Date: 20060412
  Transmission Date: 20061013
  Serious: Yes (Death, Hospitalization)
  Sender: FDA-Public Use
  Company Number: 2006047335

PATIENT
  Age: 67 Year
  Sex: Male
  Weight: 100 kg

DRUGS (2)
  1. ZYVOX [Suspect]
     Indication: INTERVERTEBRAL DISCITIS
     Dosage: 1200 MG, INTRAVENOUS
     Route: 042
     Dates: start: 20060101, end: 20060330
  2. ALL OTHER THERAPEUTIC PRODUCTS (ALL OTHER THERAPEUTIC PRODUCTS) [Concomitant]

REACTIONS (6)
  - ANAEMIA [None]
  - ANXIETY [None]
  - GENERAL PHYSICAL HEALTH DETERIORATION [None]
  - HALLUCINATION [None]
  - PSYCHOTIC DISORDER [None]
  - PULMONARY EMBOLISM [None]
